FAERS Safety Report 6035480-1 (Version None)
Quarter: 2009Q1

REPORT INFORMATION
  Report Type: 
  Country: None (occurrence: None)
  Receive Date: 20090113
  Receipt Date: 20090106
  Transmission Date: 20090719
  Serious: Yes (Hospitalization)
  Sender: FDA-Public Use
  Company Number: US-PURDUE-USA_2008_0035233

PATIENT
  Age: 94 Year
  Sex: Female

DRUGS (1)
  1. COLACE CAPSULES [Suspect]
     Indication: CONSTIPATION
     Dosage: 1 CAPSL, DAILY
     Dates: start: 20051101, end: 20060101

REACTIONS (6)
  - DIARRHOEA [None]
  - FEELING ABNORMAL [None]
  - PALPITATIONS [None]
  - REACTION TO COLOURING [None]
  - STRESS [None]
  - SYNCOPE [None]
